FAERS Safety Report 8179308-2 (Version None)
Quarter: 2012Q1

REPORT INFORMATION
  Report Type: 
  Country: None (occurrence: None)
  Receive Date: 20120229
  Receipt Date: 20120229
  Transmission Date: 20120608
  Serious: No
  Sender: FDA-Public Use
  Company Number: None

PATIENT
  Age: 77 Year
  Sex: Female
  Weight: 89.8122 kg

DRUGS (1)
  1. CARBAMAZEPINE [Suspect]
     Indication: EAR PAIN
     Dosage: 1 TABLET TWICE A DAY
     Dates: start: 20120209

REACTIONS (2)
  - SOMNOLENCE [None]
  - EPISTAXIS [None]
